FAERS Safety Report 9143171 (Version 1)
Quarter: 2013Q1

REPORT INFORMATION
  Report Type: Spontaneous
  Country: US (occurrence: US)
  Receive Date: 20130306
  Receipt Date: 20130306
  Transmission Date: 20140127
  Serious: No
  Sender: FDA-Public Use
  Company Number: US-ENDO PHARMACEUTICALS INC.-OPER20110029

PATIENT
  Age: 42 Year
  Sex: Female

DRUGS (9)
  1. OPANA ER 20MG [Suspect]
     Indication: PAIN
     Route: 048
  2. ESTRADIOL [Concomitant]
     Indication: HORMONE REPLACEMENT THERAPY
  3. OXYCODONE [Concomitant]
     Indication: PAIN
  4. PRISTIQ [Concomitant]
     Indication: PRODUCT USED FOR UNKNOWN INDICATION
  5. CLONAZEPAM [Concomitant]
     Indication: PRODUCT USED FOR UNKNOWN INDICATION
  6. SOMA [Concomitant]
     Indication: PRODUCT USED FOR UNKNOWN INDICATION
  7. TRAZODONE [Concomitant]
     Indication: INSOMNIA
  8. PHENERGAN [Concomitant]
     Indication: MIGRAINE
  9. IMITREX [Concomitant]

REACTIONS (4)
  - Migraine [Not Recovered/Not Resolved]
  - Photophobia [Not Recovered/Not Resolved]
  - Hyperacusis [Not Recovered/Not Resolved]
  - Vomiting [Not Recovered/Not Resolved]
